FAERS Safety Report 13399902 (Version 3)
Quarter: 2017Q2

REPORT INFORMATION
  Report Type: Report from Study
  Country: US (occurrence: US)
  Receive Date: 20170404
  Receipt Date: 20170502
  Transmission Date: 20170830
  Serious: Yes (Death, Hospitalization, Other)
  Sender: FDA-Public Use
  Company Number: US-GILEAD-2017-0263480

PATIENT
  Age: 42 Year
  Sex: Female

DRUGS (19)
  1. REMODULIN [Suspect]
     Active Substance: TREPROSTINIL
     Indication: PULMONARY HYPERTENSION
     Dosage: UNK
     Route: 042
  2. SILDENAFIL. [Suspect]
     Active Substance: SILDENAFIL
     Indication: PULMONARY HYPERTENSION
     Dosage: UNK
     Route: 065
  3. BUPROPION. [Concomitant]
     Active Substance: BUPROPION
  4. TIKOSYN [Concomitant]
     Active Substance: DOFETILIDE
  5. TIZANIDINE. [Concomitant]
     Active Substance: TIZANIDINE
  6. ROPINIROLE. [Concomitant]
     Active Substance: ROPINIROLE
  7. LASIX [Concomitant]
     Active Substance: FUROSEMIDE
  8. KLOR-CON [Concomitant]
     Active Substance: POTASSIUM CHLORIDE
  9. LORATADINE. [Concomitant]
     Active Substance: LORATADINE
  10. AMBRISENTAN [Suspect]
     Active Substance: AMBRISENTAN
     Indication: PULMONARY HYPERTENSION
     Dosage: 5 MG, QD
     Route: 065
     Dates: start: 20170313, end: 20170426
  11. REMODULIN [Suspect]
     Active Substance: TREPROSTINIL
     Dosage: 183 NG, Q1MINUTE
     Route: 042
     Dates: start: 20140610, end: 20170426
  12. LANSOPRAZOLE. [Concomitant]
     Active Substance: LANSOPRAZOLE
  13. FUROSEMIDE. [Concomitant]
     Active Substance: FUROSEMIDE
  14. AMBRISENTAN [Suspect]
     Active Substance: AMBRISENTAN
     Dosage: 10 MG, QD
     Route: 065
     Dates: start: 20170313
  15. WARFARIN [Concomitant]
     Active Substance: WARFARIN
  16. SPIRONOLACTONE. [Concomitant]
     Active Substance: SPIRONOLACTONE
  17. DICYCLOMINE                        /00068601/ [Concomitant]
     Active Substance: DICYCLOMINE HYDROCHLORIDE
  18. ALBUTEROL                          /00139501/ [Concomitant]
     Active Substance: ALBUTEROL
  19. ADVAIR HFA [Concomitant]
     Active Substance: FLUTICASONE PROPIONATE\SALMETEROL XINAFOATE

REACTIONS (5)
  - Death [Fatal]
  - Oedema [Not Recovered/Not Resolved]
  - Cardiac failure [Not Recovered/Not Resolved]
  - Haemoptysis [Unknown]
  - Cardiac failure congestive [Unknown]
